FAERS Safety Report 6664162-8 (Version None)
Quarter: 2010Q2

REPORT INFORMATION
  Report Type: 
  Country: None (occurrence: None)
  Receive Date: 20100401
  Receipt Date: 20100325
  Transmission Date: 20101027
  Serious: Yes (Death, Hospitalization)
  Sender: FDA-Public Use
  Company Number: Z0003664A

PATIENT
  Sex: Male
  Weight: 73 kg

DRUGS (2)
  1. PAZOPANIB [Suspect]
     Indication: NON-SMALL CELL LUNG CANCER
     Dosage: 800MG PER DAY
     Route: 048
     Dates: start: 20091222
  2. PEMETREXED [Suspect]
     Indication: NON-SMALL CELL LUNG CANCER
     Dosage: 500MGM2 CYCLIC
     Route: 042
     Dates: start: 20091222

REACTIONS (2)
  - ABDOMINAL PAIN [None]
  - ILEUS [None]
